FAERS Safety Report 7244912-2 (Version None)
Quarter: 2011Q1

REPORT INFORMATION
  Report Type: 
  Country: None (occurrence: None)
  Receive Date: 20110126
  Receipt Date: 20110118
  Transmission Date: 20110831
  Serious: Yes (Other)
  Sender: FDA-Public Use
  Company Number: US-US-EMD SERONO, INC.-7032413

PATIENT
  Sex: Male

DRUGS (5)
  1. GABAPENTIN [Concomitant]
     Indication: PAIN IN EXTREMITY
     Dates: start: 20110101
  2. PREDNISONE [Suspect]
     Indication: CONDITION AGGRAVATED
     Route: 048
     Dates: start: 20110101
  3. REBIF [Suspect]
     Indication: PRODUCT USED FOR UNKNOWN INDICATION
     Route: 058
     Dates: start: 20101014
  4. STEROIDS [Suspect]
     Indication: DISEASE PROGRESSION
     Dates: start: 20110101, end: 20110101
  5. UNSPECIFIED MEDICATION [Concomitant]
     Indication: PREMEDICATION

REACTIONS (3)
  - CONDITION AGGRAVATED [None]
  - ATRIAL FIBRILLATION [None]
  - INJECTION SITE ERYTHEMA [None]
